FAERS Safety Report 4945849-1 (Version None)
Quarter: 2006Q1

REPORT INFORMATION
  Report Type: 
  Country: None (occurrence: None)
  Receive Date: 20060117
  Receipt Date: 20050201
  Transmission Date: 20060701
  Serious: Yes (Other)
  Sender: FDA-Public Use
  Company Number: A03200500314

PATIENT
  Age: 75 Year
  Sex: Female
  Weight: 74.83 kg

DRUGS (12)
  1. PLAVIX [Suspect]
     Indication: STENT PLACEMENT
     Dosage: 300 MG ONCE - ORAL
     Route: 048
     Dates: start: 20050128, end: 20050128
  2. PLAVIX [Suspect]
     Indication: STENT PLACEMENT
     Dosage: 75MG QD ORAL
     Route: 048
     Dates: start: 20050129, end: 20050131
  3. EZETIMIBE [Concomitant]
  4. CARVEDILOL [Concomitant]
  5. POTASSIUM CHLORIDE [Concomitant]
  6. LISINOPRIL [Concomitant]
  7. DIGOXIN [Concomitant]
  8. LEVOTHYROXINE SODIUM [Concomitant]
  9. CHLORPHENIRAMINE MALEATE [Concomitant]
  10. FLUTICASONE PROPIONATE [Concomitant]
  11. ISOSORBIDE MONONITRATE [Concomitant]
  12. ASPIRIN [Concomitant]

REACTIONS (3)
  - CHEST PAIN [None]
  - PHARYNGEAL OEDEMA [None]
  - RASH PRURITIC [None]
